FAERS Safety Report 4580276-0 (Version None)
Quarter: 2005Q1

REPORT INFORMATION
  Report Type: 
  Country: None (occurrence: None)
  Receive Date: 20050214
  Receipt Date: 20040112
  Transmission Date: 20050727
  Serious: Yes (Hospitalization)
  Sender: FDA-Public Use
  Company Number: US-BRISTOL-MYERS SQUIBB COMPANY-12475745

PATIENT
  Age: 60 Year
  Sex: Male

DRUGS (4)
  1. METOPROLOL TARTRATE [Suspect]
  2. FUROSEMIDE [Suspect]
  3. PRINIVIL [Suspect]
     Route: 048
  4. ISOSORBIDE DINITRATE [Suspect]

REACTIONS (1)
  - HYPOTENSION [None]
